FAERS Safety Report 12482826 (Version 5)
Quarter: 2017Q1

REPORT INFORMATION
  Report Type: Report from Study
  Country: US (occurrence: US)
  Receive Date: 20160620
  Receipt Date: 20170314
  Transmission Date: 20170428
  Serious: Yes (Hospitalization)
  Sender: FDA-Public Use
  Company Number: US-ACTELION-A-NJ2015-115132

PATIENT
  Age: 59 Year
  Sex: Female
  Weight: 113.38 kg

DRUGS (29)
  1. LANOXIN [Suspect]
     Active Substance: DIGOXIN
     Indication: PRODUCT USED FOR UNKNOWN INDICATION
     Route: 065
  2. FUROSEMIDE. [Concomitant]
     Active Substance: FUROSEMIDE
  3. NEXIUM [Concomitant]
     Active Substance: ESOMEPRAZOLE MAGNESIUM
  4. LANTUS [Concomitant]
     Active Substance: INSULIN GLARGINE
  5. VENTAVIS [Suspect]
     Active Substance: ILOPROST
     Dosage: 5 MCG, 5-9X DAILY
     Route: 055
  6. BUDESONIDE. [Concomitant]
     Active Substance: BUDESONIDE
     Dosage: 1 VIAL, BID
     Route: 055
  7. ARAVA [Concomitant]
     Active Substance: LEFLUNOMIDE
  8. PAROXETINE. [Concomitant]
     Active Substance: PAROXETINE
  9. SYNTHROID [Concomitant]
     Active Substance: LEVOTHYROXINE SODIUM
  10. XOPENEX [Concomitant]
     Active Substance: LEVALBUTEROL HYDROCHLORIDE
     Dosage: UNK, BID
  11. NEURONTIN [Concomitant]
     Active Substance: GABAPENTIN
  12. POTASSIUM CHLORIDE. [Concomitant]
     Active Substance: POTASSIUM CHLORIDE
  13. ACCUPRIL [Concomitant]
     Active Substance: QUINAPRIL HYDROCHLORIDE
  14. VENTOLIN HFA [Concomitant]
     Active Substance: ALBUTEROL SULFATE
     Route: 055
  15. AMITRIPTYLINE [Concomitant]
     Active Substance: AMITRIPTYLINE
  16. JANUMET [Concomitant]
     Active Substance: METFORMIN HYDROCHLORIDE\SITAGLIPTIN PHOSPHATE
  17. VENTAVIS [Suspect]
     Active Substance: ILOPROST
     Dosage: 5 MCG, UNK
     Route: 055
     Dates: start: 201406
  18. METOLAZONE. [Concomitant]
     Active Substance: METOLAZONE
  19. VECTICAL [Concomitant]
     Active Substance: CALCITRIOL
  20. IMDUR [Concomitant]
     Active Substance: ISOSORBIDE MONONITRATE
  21. APIDRA [Concomitant]
     Active Substance: INSULIN GLULISINE
  22. VENTAVIS [Suspect]
     Active Substance: ILOPROST
     Indication: PULMONARY ARTERIAL HYPERTENSION
     Dosage: 5 MCG, 6-9X DAILY
     Route: 055
     Dates: start: 20140828
  23. CLOBEX [Concomitant]
     Active Substance: CLOBETASOL PROPIONATE
  24. TRILIPIX [Concomitant]
     Active Substance: FENOFIBRIC ACID
  25. TOPROL XL [Concomitant]
     Active Substance: METOPROLOL SUCCINATE
  26. CEFADROXIL. [Concomitant]
     Active Substance: CEFADROXIL
  27. MUPIROCIN. [Concomitant]
     Active Substance: MUPIROCIN
     Route: 061
  28. HYDROCODONE [Concomitant]
     Active Substance: HYDROCODONE
  29. LIPITOR [Concomitant]
     Active Substance: ATORVASTATIN CALCIUM

REACTIONS (20)
  - Pneumonia [Unknown]
  - Renal failure [Unknown]
  - Dyspnoea [Recovering/Resolving]
  - Blister [Recovering/Resolving]
  - Toxicity to various agents [Recovering/Resolving]
  - Acute kidney injury [Unknown]
  - Peripheral swelling [Unknown]
  - Limb operation [Unknown]
  - Cardiac failure congestive [Unknown]
  - Chronic obstructive pulmonary disease [Recovering/Resolving]
  - Cardiac failure [Unknown]
  - Fluid retention [Unknown]
  - Bradycardia [Recovering/Resolving]
  - Productive cough [Unknown]
  - Acute respiratory failure [Recovering/Resolving]
  - Multiple organ dysfunction syndrome [Unknown]
  - Cellulitis [Unknown]
  - Haematoma [Unknown]
  - Oedema [Recovering/Resolving]
  - Fatigue [Unknown]

NARRATIVE: CASE EVENT DATE: 20150317
